FAERS Safety Report 12365388 (Version 1)
Quarter: 2016Q2

REPORT INFORMATION
  Report Type: Spontaneous
  Country: ES (occurrence: ES)
  Receive Date: 20160513
  Receipt Date: 20160513
  Transmission Date: 20160815
  Serious: Yes (Other)
  Sender: FDA-Public Use
  Company Number: ES-PFIZER INC-2016250887

PATIENT
  Sex: Female

DRUGS (6)
  1. IBUPROFENO [Concomitant]
     Active Substance: IBUPROFEN
     Dosage: 200 MG, 3X/DAY
     Route: 048
  2. TIBOLONA [Concomitant]
     Dosage: 2.5 MG, 1X/DAY
     Route: 048
  3. CHAMPIX [Suspect]
     Active Substance: VARENICLINE TARTRATE
     Dosage: 1 MG, 1X/DAY
     Route: 048
     Dates: start: 20160304, end: 20160321
  4. PAROXETINE. [Concomitant]
     Active Substance: PAROXETINE
     Dosage: 20 MG, 1X/DAY
  5. CHAMPIX [Suspect]
     Active Substance: VARENICLINE TARTRATE
     Indication: TOBACCO USER
     Dosage: 0.5 MG, 1X/DAY
     Route: 048
     Dates: start: 20160205, end: 20160212
  6. TRANXILIUM [Concomitant]
     Active Substance: CLORAZEPATE DIPOTASSIUM
     Dosage: 10 MG, 1X/DAY
     Route: 048

REACTIONS (4)
  - Delirium [Recovering/Resolving]
  - Hallucination [Recovering/Resolving]
  - Abnormal dreams [Recovering/Resolving]
  - Nightmare [Recovering/Resolving]

NARRATIVE: CASE EVENT DATE: 201603
